FAERS Safety Report 6418188-X (Version None)
Quarter: 2009Q4

REPORT INFORMATION
  Report Type: 
  Country: None (occurrence: None)
  Receive Date: 20091028
  Receipt Date: 20091019
  Transmission Date: 20100525
  Serious: Yes (Hospitalization, Other)
  Sender: FDA-Public Use
  Company Number: US-ELI_LILLY_AND_COMPANY-US200907001286

PATIENT
  Sex: Female
  Weight: 76.3 kg

DRUGS (4)
  1. ALIMTA [Suspect]
     Indication: NON-SMALL CELL LUNG CANCER STAGE IIIB
     Dosage: 500 MG/M2, UNK
     Dates: start: 20080918, end: 20080918
  2. FOLIC ACID [Concomitant]
  3. VITAMIN B-12 [Concomitant]
  4. CORTICOSTEROIDS [Concomitant]

REACTIONS (6)
  - ASTHENIA [None]
  - DEHYDRATION [None]
  - DIZZINESS POSTURAL [None]
  - LEUKOPENIA [None]
  - ORGANISING PNEUMONIA [None]
  - PNEUMONIA PRIMARY ATYPICAL [None]
